FAERS Safety Report 8343500-4 (Version None)
Quarter: 2012Q2

REPORT INFORMATION
  Report Type: 
  Country: None (occurrence: None)
  Receive Date: 20120508
  Receipt Date: 20100515
  Transmission Date: 20120825
  Serious: No
  Sender: FDA-Public Use
  Company Number: US-TEVA-2010002783

PATIENT
  Age: 80 Year
  Sex: Female

DRUGS (2)
  1. RITUXAN [Suspect]
  2. TREANDA [Suspect]
     Route: 042

REACTIONS (1)
  - INFUSION SITE EXTRAVASATION [None]
